FAERS Safety Report 10168806 (Version 1)
Quarter: 2014Q2

REPORT INFORMATION
  Report Type: Spontaneous
  Country: US (occurrence: US)
  Receive Date: 20140513
  Receipt Date: 20140513
  Transmission Date: 20141212
  Serious: Yes (Hospitalization)
  Sender: FDA-Public Use
  Company Number: US-SA-2014SA060297

PATIENT
  Age: 18 Year
  Sex: Male

DRUGS (6)
  1. FABRAZYME [Suspect]
     Indication: FABRY^S DISEASE
     Route: 042
     Dates: start: 20130423
  2. NEURONTIN [Concomitant]
     Indication: NEURALGIA
  3. IBUPROFEN [Concomitant]
     Indication: PREMEDICATION
  4. TYLENOL [Concomitant]
     Indication: PREMEDICATION
  5. BENADRYL [Concomitant]
     Indication: PREMEDICATION
  6. PREDNISONE [Concomitant]
     Indication: PREMEDICATION

REACTIONS (3)
  - Tremor [Recovered/Resolved]
  - Hypertension [Recovered/Resolved]
  - Dyspnoea [Recovered/Resolved]
